FAERS Safety Report 23879275 (Version 2)
Quarter: 2024Q2

REPORT INFORMATION
  Report Type: Spontaneous
  Country: NL (occurrence: NL)
  Receive Date: 20240521
  Receipt Date: 20240603
  Transmission Date: 20240716
  Serious: Yes (Congenital Anomaly, Other)
  Sender: FDA-Public Use
  Company Number: None

PATIENT

DRUGS (1)
  1. IXEKIZUMAB [Suspect]
     Active Substance: IXEKIZUMAB
     Indication: Rheumatic disorder
     Dosage: 1 DOSAGE FORM, OTHER (EVERY FOUR WEEKS)
     Route: 065
     Dates: start: 20230901

REACTIONS (4)
  - Hypoplastic left heart syndrome [Unknown]
  - Abortion induced [Unknown]
  - Foetal exposure via father [Unknown]
  - Off label use [Unknown]
